FAERS Safety Report 17499785 (Version 1)
Quarter: 2020Q1

REPORT INFORMATION
  Report Type: Spontaneous
  Country: GB (occurrence: GB)
  Receive Date: 20200305
  Receipt Date: 20200305
  Transmission Date: 20200409
  Serious: Yes (Other)
  Sender: FDA-Public Use
  Company Number: GB-TEVA-2020-GB-1194897

PATIENT
  Age: 27 Year
  Sex: Female
  Weight: 85 kg

DRUGS (10)
  1. LEVETIRACETAM. [Suspect]
     Active Substance: LEVETIRACETAM
     Dosage: 250 MG, TAKE ONE AT NIGHT FOR 2 WEEKS, THEN 1 TO BE TAK...
     Dates: start: 20200101
  2. SALBUTAMOL [Concomitant]
     Active Substance: ALBUTEROL
     Dosage: 2 DOSAGE FORMS
     Route: 055
     Dates: start: 20191121, end: 20191219
  3. LAMICTAL [Concomitant]
     Active Substance: LAMOTRIGINE
     Dosage: 2 DOSAGE FORMS
     Dates: start: 20190919
  4. AMOXICILLIN. [Concomitant]
     Active Substance: AMOXICILLIN
     Dosage: 3 DOSAGE FORMS
     Dates: start: 20191007, end: 20191014
  5. VENLAFAXINE [Concomitant]
     Active Substance: VENLAFAXINE HYDROCHLORIDE
     Indication: DEPRESSION
     Dosage: 1 DOSAGE FORMS DAILY; EVERY MORNING
     Dates: start: 20190919
  6. LAMOTRIGINE. [Concomitant]
     Active Substance: LAMOTRIGINE
     Dosage: EVENING (100 + 50 + 25 = 175MG)
     Dates: start: 20190919
  7. PREDNISOLONE. [Concomitant]
     Active Substance: PREDNISOLONE
     Dosage: 6 DOSAGE FORMS DAILY; ALL AT ONCE, ONCE A DAY. USE ...
     Dates: start: 20191007, end: 20191012
  8. LEVOTHYROXINE. [Concomitant]
     Active Substance: LEVOTHYROXINE
     Dosage: 1 DOSAGE FORMS
     Dates: start: 20190919
  9. LEVETIRACETAM. [Suspect]
     Active Substance: LEVETIRACETAM
     Dosage: 250 MG, AT NIGHT FOR 2 WEEKS, THEN 1 TO BE TAK...
     Dates: start: 20191217, end: 20191231
  10. DOXYCYCLINE. [Concomitant]
     Active Substance: DOXYCYCLINE
     Dosage: TAKE TWO CAPSULES NOW, AND TAKE ONE CAPSULE ONC...
     Dates: start: 20191125, end: 20191127

REACTIONS (4)
  - Lip ulceration [Unknown]
  - Stevens-Johnson syndrome [Unknown]
  - Lip blister [Unknown]
  - Hypersensitivity [Unknown]

NARRATIVE: CASE EVENT DATE: 20200103
